FAERS Safety Report 23906773 (Version 1)
Quarter: 2024Q2

REPORT INFORMATION
  Report Type: Spontaneous
  Country: IN (occurrence: IN)
  Receive Date: 20240528
  Receipt Date: 20240528
  Transmission Date: 20240715
  Serious: Yes (Death, Hospitalization)
  Sender: FDA-Public Use
  Company Number: IN-APIL-2315947US

PATIENT
  Sex: Male
  Weight: 0.454 kg

DRUGS (1)
  1. PROGESTERONE [Suspect]
     Active Substance: PROGESTERONE
     Indication: Maternal exposure timing unspecified
     Dosage: DOSE DESC: UNK, FORM: UNKNOWN
     Route: 064

REACTIONS (2)
  - Low birth weight baby [Fatal]
  - Premature baby [Fatal]
